FAERS Safety Report 9423539 (Version 1)
Quarter: 2013Q3

REPORT INFORMATION
  Report Type: Spontaneous
  Country: PR (occurrence: PR)
  Receive Date: 20130726
  Receipt Date: 20130726
  Transmission Date: 20140515
  Serious: No
  Sender: FDA-Public Use
  Company Number: PR-BAXTER-2012BAX017437

PATIENT
  Sex: Male

DRUGS (1)
  1. PENICILLIN G POTASSIUM INJECTION, USP [Suspect]
     Indication: PRODUCT USED FOR UNKNOWN INDICATION

REACTIONS (8)
  - Hypertension [Unknown]
  - Influenza like illness [Unknown]
  - Visual impairment [Unknown]
  - Drug hypersensitivity [Unknown]
  - Skin discolouration [Unknown]
  - Diarrhoea [Unknown]
  - Dizziness [Unknown]
  - Hepatic enzyme abnormal [Unknown]
